FAERS Safety Report 23704977 (Version 1)
Quarter: 2024Q2

REPORT INFORMATION
  Report Type: Spontaneous
  Country: GB (occurrence: GB)
  Receive Date: 20240404
  Receipt Date: 20240404
  Transmission Date: 20240716
  Serious: Yes (Other)
  Sender: FDA-Public Use
  Company Number: GB-MHRA-MED-202403031132065210-JSGTM

PATIENT
  Age: 11 Year
  Sex: Male

DRUGS (1)
  1. SERTRALINE [Suspect]
     Active Substance: SERTRALINE HYDROCHLORIDE
     Indication: Anxiety
     Dosage: STARTED 25MG, THEN 50MG, NOW 75MG; ;
     Route: 065
     Dates: start: 20230701

REACTIONS (1)
  - Urinary incontinence [Recovering/Resolving]

NARRATIVE: CASE EVENT DATE: 20230801
